FAERS Safety Report 21436845 (Version 3)
Quarter: 2022Q4

REPORT INFORMATION
  Report Type: Spontaneous
  Country: CN (occurrence: CN)
  Receive Date: 20221010
  Receipt Date: 20221017
  Transmission Date: 20230113
  Serious: Yes (Life-Threatening, Hospitalization, Other)
  Sender: FDA-Public Use
  Company Number: CN-MLMSERVICE-20220927-3810890-1

PATIENT
  Age: 7 Year
  Sex: Male
  Weight: 43.5 kg

DRUGS (1)
  1. METHOTREXATE SODIUM [Suspect]
     Active Substance: METHOTREXATE SODIUM
     Indication: B-cell type acute leukaemia
     Dosage: UNK, (HIGH DOSE)
     Dates: start: 2019

REACTIONS (4)
  - Drug hypersensitivity [Recovered/Resolved]
  - Infection [Recovered/Resolved]
  - Oral mucosa erosion [Recovered/Resolved]
  - Skin ulcer [Recovered/Resolved]

NARRATIVE: CASE EVENT DATE: 20191001
